FAERS Safety Report 4960903-6 (Version None)
Quarter: 2006Q1

REPORT INFORMATION
  Report Type: 
  Country: None (occurrence: None)
  Receive Date: 20060201
  Receipt Date: 20050207
  Transmission Date: 20060701
  Serious: Yes (Hospitalization)
  Sender: FDA-Public Use
  Company Number: 05P-163-0289862-00

PATIENT
  Sex: Female

DRUGS (2)
  1. DEPACON [Suspect]
     Indication: EPILEPSY
  2. LORAZEPAM [Concomitant]

REACTIONS (2)
  - ENCEPHALOPATHY [None]
  - HEPATIC ENZYME INCREASED [None]
